FAERS Safety Report 23994563 (Version 1)
Quarter: 2024Q2

REPORT INFORMATION
  Report Type: Spontaneous
  Country: US (occurrence: US)
  Receive Date: 20240620
  Receipt Date: 20240620
  Transmission Date: 20240716
  Serious: Yes (Hospitalization)
  Sender: FDA-Public Use
  Company Number: LANN2400730

PATIENT
  Age: 0 Year
  Sex: Female
  Weight: 4.535 kg

DRUGS (2)
  1. HYOSYNE [Suspect]
     Active Substance: HYOSCYAMINE SULFATE
     Indication: Abdominal pain upper
     Dosage: 1 MILLILITER, QD
     Route: 048
  2. NEXIUM I.V. [Concomitant]
     Active Substance: ESOMEPRAZOLE SODIUM
     Indication: Product used for unknown indication
     Dosage: UNK
     Route: 065

REACTIONS (5)
  - Decreased appetite [Recovered/Resolved]
  - Anuria [Unknown]
  - Heart rate increased [Recovered/Resolved]
  - Vomiting [Unknown]
  - Incorrect dose administered [Unknown]

NARRATIVE: CASE EVENT DATE: 20240528
